FAERS Safety Report 24965197 (Version 2)
Quarter: 2025Q2

REPORT INFORMATION
  Report Type: Spontaneous
  Country: PL (occurrence: PL)
  Receive Date: 20250213
  Receipt Date: 20250415
  Transmission Date: 20250716
  Serious: Yes (Other)
  Sender: NOVARTIS
  Company Number: PL-002147023-NVSC2025PL024653

PATIENT
  Age: 49 Year
  Sex: Female

DRUGS (5)
  1. RIBOCICLIB [Suspect]
     Active Substance: RIBOCICLIB
     Indication: Breast cancer
     Dosage: 600 MG, QD(FOR 21 DAYS WITH A 7-DAY BREAK THEREAFTER)
     Route: 065
  2. RIBOCICLIB [Suspect]
     Active Substance: RIBOCICLIB
     Indication: Invasive ductal breast carcinoma
     Route: 065
  3. RIBOCICLIB [Suspect]
     Active Substance: RIBOCICLIB
     Route: 065
  4. LETROZOLE [Suspect]
     Active Substance: LETROZOLE
     Indication: Breast cancer
     Route: 065
  5. LETROZOLE [Suspect]
     Active Substance: LETROZOLE
     Indication: Invasive ductal breast carcinoma

REACTIONS (4)
  - Neutropenia [Recovered/Resolved]
  - Neutropenia [Unknown]
  - Asthenia [Unknown]
  - Erythema [Unknown]
